FAERS Safety Report 6585330-X (Version None)
Quarter: 2010Q1

REPORT INFORMATION
  Report Type: 
  Country: None (occurrence: None)
  Receive Date: 20100217
  Receipt Date: 20100209
  Transmission Date: 20100710
  Serious: Yes (Hospitalization)
  Sender: FDA-Public Use
  Company Number: A0843671A

PATIENT
  Age: 63 Year
  Sex: Female
  Weight: 100 kg

DRUGS (9)
  1. ALLI [Suspect]
     Route: 048
     Dates: start: 20100114, end: 20100115
  2. DETROL [Concomitant]
  3. NEXIUM [Concomitant]
  4. SPIRIVA [Concomitant]
  5. LEVOTHYROXINE SODIUM [Concomitant]
  6. ENALAPRIL MALEATE [Concomitant]
  7. MULTI-VITAMIN [Concomitant]
  8. FISH OIL [Concomitant]
  9. CALTRATE WITH D [Concomitant]

REACTIONS (10)
  - ABDOMINAL PAIN UPPER [None]
  - ASTHENIA [None]
  - BACK PAIN [None]
  - CHOLECYSTECTOMY [None]
  - CONFUSION POSTOPERATIVE [None]
  - DECREASED APPETITE [None]
  - DISCOMFORT [None]
  - MALAISE [None]
  - RETCHING [None]
  - VOMITING [None]
